FAERS Safety Report 5658285-X (Version None)
Quarter: 2008Q1

REPORT INFORMATION
  Report Type: 
  Country: None (occurrence: None)
  Receive Date: 20080310
  Receipt Date: 20071016
  Transmission Date: 20080703
  Serious: No
  Sender: FDA-Public Use
  Company Number: US-BAYER-200710287BCC

PATIENT
  Age: 62 Year
  Sex: Male
  Weight: 75 kg

DRUGS (6)
  1. ALEVE [Suspect]
     Indication: HEADACHE
     Dosage: TOTAL DAILY DOSE: 220 MG  UNIT DOSE: 220 MG
     Route: 048
     Dates: start: 20070124
  2. ALEVE [Suspect]
  3. RESEARCH PROTOCOLDRUG AMN-107 [Concomitant]
  4. SYNTHROID [Concomitant]
  5. SINGULAIR [Concomitant]
  6. OXYCODONE HCL [Concomitant]

REACTIONS (2)
  - ADVERSE DRUG REACTION [None]
  - CHEST DISCOMFORT [None]
